FAERS Safety Report 5088780-6 (Version None)
Quarter: 2006Q3

REPORT INFORMATION
  Report Type: 
  Country: None (occurrence: None)
  Receive Date: 20060825
  Receipt Date: 20060818
  Transmission Date: 20061208
  Serious: Yes (Hospitalization)
  Sender: FDA-Public Use
  Company Number: US-GLAXOSMITHKLINE-A0617358A

PATIENT
  Sex: Female
  Weight: 2.1 kg

DRUGS (5)
  1. EPZICOM [Suspect]
     Dosage: 1TAB PER DAY
  2. AZT [Suspect]
     Indication: HIV INFECTION
     Route: 050
     Dates: start: 20060724
  3. REYATAZ [Concomitant]
     Dosage: 300MG PER DAY
  4. RITONAVIR [Concomitant]
     Dosage: 100MG PER DAY
  5. GLYBURIDE [Concomitant]

REACTIONS (17)
  - ABDOMINAL DISTENSION [None]
  - BREECH PRESENTATION [None]
  - CAESAREAN SECTION [None]
  - DRUG EXPOSURE DURING PREGNANCY [None]
  - ERYTHEMA [None]
  - FEELING JITTERY [None]
  - HYPERBILIRUBINAEMIA [None]
  - HYPOGLYCAEMIA [None]
  - HYPOGLYCAEMIA NEONATAL [None]
  - INTESTINAL DILATATION [None]
  - JAUNDICE [None]
  - METABOLIC ACIDOSIS [None]
  - PREMATURE BABY [None]
  - SEPSIS [None]
  - SEPSIS NEONATAL [None]
  - SMALL FOR DATES BABY [None]
  - TWIN PREGNANCY [None]
